FAERS Safety Report 5457365-1 (Version None)
Quarter: 2007Q3

REPORT INFORMATION
  Report Type: 
  Country: None (occurrence: None)
  Receive Date: 20070918
  Receipt Date: 20070302
  Transmission Date: 20080115
  Serious: Yes (Other)
  Sender: FDA-Public Use
  Company Number: US-ASTRAZENECA-2007UW03169

PATIENT
  Age: 17308 Day
  Sex: Male
  Weight: 79.1 kg

DRUGS (12)
  1. SEROQUEL [Suspect]
     Indication: BIPOLAR DISORDER
     Route: 048
     Dates: start: 20050401
  2. SEROQUEL [Suspect]
     Route: 048
     Dates: start: 20061101
  3. ABILIFY [Concomitant]
  4. GEODON [Concomitant]
  5. NEURONTIN [Concomitant]
     Route: 048
  6. CYMBALTA [Concomitant]
     Route: 048
  7. NEXIUM [Concomitant]
     Route: 048
  8. TOPROL-XL [Concomitant]
     Route: 048
  9. GLUCOPHAGE [Concomitant]
     Route: 048
  10. ZOCOR [Concomitant]
     Route: 048
  11. PREVACID [Concomitant]
     Route: 048
  12. DARVOCET [Concomitant]
     Dosage: AS NEEDED

REACTIONS (3)
  - DIABETES MELLITUS INADEQUATE CONTROL [None]
  - KETOACIDOSIS [None]
  - PANCREATITIS ACUTE [None]
